FAERS Safety Report 6360785-4 (Version None)
Quarter: 2009Q3

REPORT INFORMATION
  Report Type: 
  Country: None (occurrence: None)
  Receive Date: 20090918
  Receipt Date: 20090908
  Transmission Date: 20100115
  Serious: Yes (Other)
  Sender: FDA-Public Use
  Company Number: FR-JNJFOC-20090903028

PATIENT
  Age: 62 Year
  Sex: Female

DRUGS (2)
  1. INFLIXIMAB [Suspect]
     Indication: RHEUMATOID ARTHRITIS
     Dosage: RECEIVED FOR 29 MONTHS  16 INFUSIONS
     Route: 042
  2. METHOTREXATE [Concomitant]

REACTIONS (1)
  - MYCOSIS FUNGOIDES [None]
